FAERS Safety Report 18061966 (Version 2)
Quarter: 2020Q3

REPORT INFORMATION
  Report Type: Spontaneous
  Country: US (occurrence: US)
  Receive Date: 20200724
  Receipt Date: 20200824
  Transmission Date: 20201103
  Serious: No
  Sender: FDA-Public Use
  Company Number: US-ASTRAZENECA-2020SE91313

PATIENT
  Sex: Male
  Weight: 108.9 kg

DRUGS (5)
  1. BYDUREON BCISE [Suspect]
     Active Substance: EXENATIDE
     Dosage: 2.0MG UNKNOWN
     Route: 065
  2. INSULIN [Concomitant]
     Active Substance: INSULIN NOS
  3. TOUJEO [Concomitant]
     Active Substance: INSULIN GLARGINE
  4. NOVALOG FLEX PEN [Concomitant]
     Dosage: 37, 35, 38 THREE TIMES A DAY
  5. JARDIANCE [Concomitant]
     Active Substance: EMPAGLIFLOZIN

REACTIONS (5)
  - Weight increased [Unknown]
  - Injection site haemorrhage [Unknown]
  - Blood glucose abnormal [Unknown]
  - Wrong technique in device usage process [Unknown]
  - Device issue [Unknown]
